FAERS Safety Report 9913991 (Version 1)
Quarter: 2014Q1

REPORT INFORMATION
  Report Type: Spontaneous
  Country: US (occurrence: None)
  Receive Date: 20140219
  Receipt Date: 20140219
  Transmission Date: 20141002
  Serious: Yes (Hospitalization)
  Sender: FDA-Public Use
  Company Number: None

PATIENT
  Age: 18 Year
  Sex: Female
  Weight: 98.88 kg

DRUGS (1)
  1. TOPIRAMATE 100MG ZYDUS [Suspect]
     Dosage: 2 PILLS  TWICE DAILY  TAKEN BY MOUTH
     Route: 048

REACTIONS (15)
  - Paraesthesia [None]
  - Abdominal distension [None]
  - Thirst [None]
  - Gingival bleeding [None]
  - Tooth socket haemorrhage [None]
  - Dry eye [None]
  - Vomiting [None]
  - Throat irritation [None]
  - Lacrimation increased [None]
  - Burning sensation [None]
  - Eye inflammation [None]
  - Diarrhoea [None]
  - Dry skin [None]
  - Skin fissures [None]
  - Sensory disturbance [None]
